FAERS Safety Report 4601457-3 (Version None)
Quarter: 2005Q1

REPORT INFORMATION
  Report Type: 
  Country: None (occurrence: None)
  Receive Date: 20050308
  Receipt Date: 20050225
  Transmission Date: 20050727
  Serious: Yes (Other)
  Sender: FDA-Public Use
  Company Number: CH-MERCK-0502CHE00030

PATIENT
  Age: 38 Year
  Sex: Female

DRUGS (4)
  1. ZOCOR [Suspect]
     Indication: HYPERCHOLESTEROLAEMIA
     Route: 048
     Dates: end: 20040519
  2. LAMOTRIGINE [Concomitant]
     Route: 048
  3. KETAZOLAM [Concomitant]
     Route: 048
  4. FOLIC ACID [Concomitant]
     Route: 065
     Dates: start: 20040101

REACTIONS (1)
  - DRUG EXPOSURE DURING PREGNANCY [None]
